FAERS Safety Report 10206577 (Version 1)
Quarter: 2014Q2

REPORT INFORMATION
  Report Type: Spontaneous
  Country: US (occurrence: US)
  Receive Date: 20140530
  Receipt Date: 20140530
  Transmission Date: 20141212
  Serious: No
  Sender: FDA-Public Use
  Company Number: US-GLAXOSMITHKLINE-A1043154A

PATIENT
  Age: 49 Year
  Sex: Female

DRUGS (4)
  1. FLOLAN [Suspect]
     Indication: PULMONARY ARTERIAL HYPERTENSION
     Dosage: 79NGKM CONTINUOUS
     Route: 042
     Dates: start: 19991206
  2. COUMADIN [Concomitant]
  3. TEGADERM [Concomitant]
  4. CHLORHEXIDINE [Concomitant]

REACTIONS (3)
  - Skin irritation [Recovering/Resolving]
  - Catheter site inflammation [Recovering/Resolving]
  - Catheter site pruritus [Recovering/Resolving]
